FAERS Safety Report 16060243 (Version 8)
Quarter: 2020Q2

REPORT INFORMATION
  Report Type: Report from Study
  Country: CN (occurrence: CN)
  Receive Date: 20190312
  Receipt Date: 20200430
  Transmission Date: 20200713
  Serious: Yes (Hospitalization)
  Sender: FDA-Public Use
  Company Number: CN-AMGEN-CHNCT2019036260

PATIENT
  Age: 31 Year
  Sex: Male
  Weight: 60.2 kg

DRUGS (13)
  1. CALCIUM CARBONATE W/COLECALCIFEROL [Concomitant]
     Active Substance: CALCIUM CARBONATE\CHOLECALCIFEROL
     Dosage: 1 UNK (600 MILLIGRAM/125 INTERNATIONAL UNIT)
     Route: 048
     Dates: start: 20190223, end: 20190314
  2. LANTHANUM CARBONATE. [Concomitant]
     Active Substance: LANTHANUM CARBONATE
     Dosage: 500 MILLIGRAM
     Route: 048
     Dates: start: 201802, end: 20190316
  3. HEPARIN SODIUM. [Concomitant]
     Active Substance: HEPARIN SODIUM
     Dosage: 40 MILLIGRAM
     Route: 042
     Dates: start: 2017, end: 20190316
  4. GLYCEROL [Concomitant]
     Active Substance: GLYCERIN
     Dosage: 10 MILLILITER
     Route: 050
     Dates: start: 20181207, end: 20181207
  5. ROCALTROL [Concomitant]
     Active Substance: CALCITRIOL
     Dosage: 0.25 MICROGRAM
     Route: 048
     Dates: start: 201902, end: 20190314
  6. AMLODIPINE/VALSARTAN [Concomitant]
     Active Substance: AMLODIPINE\VALSARTAN
     Dosage: 5 MILLIGRAM
     Route: 048
     Dates: start: 2015, end: 20190316
  7. LYSINE [Concomitant]
     Active Substance: LYSINE
     Dosage: 42.5 UNK
     Route: 058
     Dates: start: 2015, end: 20190316
  8. MECOBALAMIN [Concomitant]
     Active Substance: METHYLCOBALAMIN
     Dosage: 0.5 MILLIGRAM
     Route: 042
     Dates: start: 20181211, end: 20190309
  9. ERYTHROPOIETIN HUMAN [Concomitant]
     Active Substance: ERYTHROPOIETIN
     Dosage: 10000 INTERNATIONAL UNIT
     Route: 042
     Dates: start: 2016, end: 20190316
  10. LEVOCARNITINE. [Concomitant]
     Active Substance: LEVOCARNITINE
     Dosage: 1 GRAM
     Route: 042
     Dates: start: 20181206, end: 20190309
  11. NITRENDIPINE [Concomitant]
     Active Substance: NITRENDIPINE
     Indication: HYPERTENSION
     Dosage: 20 MILLIGRAM AND 1 UNK
     Route: 048
     Dates: start: 20181206, end: 20190306
  12. ETELCALCETIDE [Suspect]
     Active Substance: ETELCALCETIDE
     Indication: HYPERPARATHYROIDISM SECONDARY
     Dosage: UNK
     Route: 065
     Dates: start: 20181204
  13. INSULIN [Concomitant]
     Active Substance: INSULIN NOS
     Dosage: 42.5 UNK
     Dates: start: 2015, end: 20190316

REACTIONS (1)
  - Hypertension [Not Recovered/Not Resolved]

NARRATIVE: CASE EVENT DATE: 20190306
